FAERS Safety Report 24019394 (Version 1)
Quarter: 2024Q2

REPORT INFORMATION
  Report Type: Spontaneous
  Country: IT (occurrence: IT)
  Receive Date: 20240627
  Receipt Date: 20240627
  Transmission Date: 20240715
  Serious: Yes (Other)
  Sender: FDA-Public Use
  Company Number: None

PATIENT
  Age: 28 Year
  Sex: Male

DRUGS (1)
  1. METHOTREXATE SODIUM [Suspect]
     Active Substance: METHOTREXATE SODIUM
     Indication: Psoriasis
     Dosage: 12.5 MG, WEEKLY
     Route: 030
     Dates: start: 20230612, end: 20240526

REACTIONS (2)
  - Drug ineffective [Recovered/Resolved]
  - Psoriasis area severity index increased [Recovered/Resolved]

NARRATIVE: CASE EVENT DATE: 20240401
